FAERS Safety Report 9525016 (Version 1)
Quarter: 2013Q1

REPORT INFORMATION
  Report Type: Spontaneous
  Country: US (occurrence: None)
  Receive Date: 20130314
  Receipt Date: 20130314
  Transmission Date: 20140127
  Serious: No
  Sender: FDA-Public Use
  Company Number: 1301USA004939

PATIENT
  Sex: Male

DRUGS (9)
  1. VICTRELIS (BOCEPREVIR) CAPSULE, 200MG [Suspect]
     Dosage: 4 DF, TID, ORAL
     Route: 048
  2. RIBAVIRIN (RIBAVIRIN) CAPSULE, 200MG [Suspect]
  3. PEGASYS [Suspect]
  4. TAURINE (TAURINE) CAPSULE, 500 MG [Concomitant]
  5. ARGININ (ARGININE) CAPSULE, 500 MG [Concomitant]
  6. MAGNESIUM (UNSPECIFIED) (MAGNESIUM (UNSPECIFIED) CAPSULE, 300 MG [Concomitant]
  7. MILK THISTLE (MILE THISTLE) [Concomitant]
  8. GLUCOSAMINE (GLUCOSAMINE) CAPSULE, 1000 MG [Concomitant]
  9. PYCNOGENOL (ANTHOCYANINS (UNSPECIFIED)) CAPSULE, 25 MG [Concomitant]

REACTIONS (6)
  - Red blood cell count decreased [None]
  - White blood cell count decreased [None]
  - Fatigue [None]
  - Disorientation [None]
  - Dizziness [None]
  - Nausea [None]
